FAERS Safety Report 9070574 (Version 1)
Quarter: 2013Q1

REPORT INFORMATION
  Report Type: Report from Study
  Country: US (occurrence: US)
  Receive Date: 20130129
  Receipt Date: 20130129
  Transmission Date: 20140127
  Serious: No
  Sender: FDA-Public Use
  Company Number: US-ABBOTT-12P-163-0929616-00

PATIENT
  Sex: Female
  Weight: 74.91 kg

DRUGS (5)
  1. HUMIRA 40 MG/0.8 ML PEN [Suspect]
     Indication: PSORIASIS
     Dates: start: 2011
  2. HUMIRA 40 MG/0.8 ML PEN [Suspect]
     Indication: PSORIATIC ARTHROPATHY
  3. BETAMETHASONE [Concomitant]
     Indication: PSORIASIS
     Route: 061
  4. TRIAMCINOLONE [Concomitant]
     Indication: PSORIASIS
     Route: 061
  5. MOTRIN [Concomitant]
     Indication: PAIN

REACTIONS (8)
  - Contusion [Unknown]
  - Drug ineffective [Unknown]
  - Drug ineffective [Unknown]
  - Drug ineffective [Not Recovered/Not Resolved]
  - Psoriasis [Not Recovered/Not Resolved]
  - Pain [Not Recovered/Not Resolved]
  - Rash pruritic [Not Recovered/Not Resolved]
  - Psoriatic arthropathy [Unknown]
